FAERS Safety Report 6437146-2 (Version None)
Quarter: 2009Q4

REPORT INFORMATION
  Report Type: 
  Country: None (occurrence: None)
  Receive Date: 20091112
  Receipt Date: 20091102
  Transmission Date: 20100525
  Serious: Yes (Hospitalization, Other)
  Sender: FDA-Public Use
  Company Number: US-ELI_LILLY_AND_COMPANY-US200909003382

PATIENT
  Sex: Female

DRUGS (13)
  1. FORTEO [Suspect]
     Indication: OSTEOPOROSIS
     Dosage: 20 UG, DAILY (1/D)
     Dates: start: 20090602, end: 20090805
  2. VICODIN [Concomitant]
  3. LYRICA [Concomitant]
  4. DILTIAZEM [Concomitant]
  5. HYDRALAZINE HCL [Concomitant]
  6. LISINOPRIL [Concomitant]
  7. PROTONIX [Concomitant]
  8. EVISTA [Concomitant]
  9. ASPIRIN [Concomitant]
  10. CALCIUM WITH VITAMIN D [Concomitant]
  11. COREG [Concomitant]
  12. PLAVIX [Concomitant]
  13. DICYCLOMINE [Concomitant]

REACTIONS (5)
  - BACK PAIN [None]
  - FALL [None]
  - FRACTURED SACRUM [None]
  - PAIN IN EXTREMITY [None]
  - RIB FRACTURE [None]
